FAERS Safety Report 26094930 (Version 1)
Quarter: 2025Q4

REPORT INFORMATION
  Report Type: Spontaneous
  Country: GB (occurrence: GB)
  Receive Date: 20251126
  Receipt Date: 20251126
  Transmission Date: 20260117
  Serious: Yes (Other)
  Sender: TEVA
  Company Number: GB-MHRA-WEBCOVID-202510290853394130-HPZYR

PATIENT
  Age: 41 Year
  Sex: Male
  Weight: 76 kg

DRUGS (2)
  1. ZOLPIDEM [Suspect]
     Active Substance: ZOLPIDEM TARTRATE
     Indication: Product used for unknown indication
     Route: 065
     Dates: start: 20251028
  2. COMIRNATY (TOZINAMERAN) [Suspect]
     Active Substance: TOZINAMERAN
     Indication: COVID-19 immunisation
     Dosage: DOSE 2, PFIZER/BIONTECH COMIRNATY COVID-19 VACCINE 28/10/2025
     Route: 065
     Dates: start: 20251028, end: 20251028

REACTIONS (3)
  - Migraine with aura [Recovered/Resolved]
  - Neck pain [Not Recovered/Not Resolved]
  - Headache [Not Recovered/Not Resolved]

NARRATIVE: CASE EVENT DATE: 20251029
